FAERS Safety Report 6223212-3 (Version None)
Quarter: 2009Q2

REPORT INFORMATION
  Report Type: 
  Country: None (occurrence: None)
  Receive Date: 20090611
  Receipt Date: 20090602
  Transmission Date: 20091009
  Serious: Yes (Other)
  Sender: FDA-Public Use
  Company Number: US-ABBOTT-09P-163-0570605-00

PATIENT
  Sex: Female
  Weight: 93.07 kg

DRUGS (7)
  1. HUMIRA [Suspect]
     Indication: CROHN'S DISEASE
     Route: 058
     Dates: start: 20040101, end: 20040401
  2. HUMIRA [Suspect]
     Route: 058
     Dates: start: 20060101, end: 20060101
  3. HUMIRA [Suspect]
     Indication: CROHN'S DISEASE
     Route: 058
     Dates: start: 20070101, end: 20090501
  4. HUMIRA [Suspect]
     Route: 058
     Dates: start: 20090501
  5. AMLODIPINE BESYLATE [Concomitant]
     Indication: HYPERTENSION
     Route: 048
  6. WELLBUTRIN [Concomitant]
     Indication: DEPRESSION
     Route: 048
  7. COUMADIN [Concomitant]
     Indication: DEEP VEIN THROMBOSIS

REACTIONS (4)
  - BONE NEOPLASM [None]
  - CROHN'S DISEASE [None]
  - DEEP VEIN THROMBOSIS [None]
  - VULVAL CANCER [None]
